FAERS Safety Report 7571510 (Version 2)
Quarter: 2013Q1

REPORT INFORMATION
  Report Type: Spontaneous
  Country: US (occurrence: US)
  Receive Date: 20100902
  Receipt Date: 20130219
  Transmission Date: 20140127
  Serious: Yes (Death, Hospitalization)
  Sender: FDA-Public Use
  Company Number: US-BRACCO-005128

PATIENT
  Age: 52 Year
  Sex: Female

DRUGS (2)
  1. ISOVUE 370 [Suspect]
     Indication: NODULE
     Route: 042
     Dates: start: 20100618, end: 20100618
  2. ISOVUE 370 [Suspect]
     Indication: COMPUTERISED TOMOGRAM
     Route: 042
     Dates: start: 20100618, end: 20100618

REACTIONS (1)
  - Anaphylactic reaction [Fatal]
